FAERS Safety Report 9060902 (Version 1)
Quarter: 2013Q1

REPORT INFORMATION
  Report Type: Spontaneous
  Country: DE (occurrence: DE)
  Receive Date: 20130212
  Receipt Date: 20130212
  Transmission Date: 20140127
  Serious: Yes (Congenital Anomaly)
  Sender: FDA-Public Use
  Company Number: DE-MYLANLABS-2013S1002346

PATIENT
  Age: 0 Year
  Sex: Male
  Weight: 3.95 kg

DRUGS (9)
  1. AZATHIOPRINE [Suspect]
     Dosage: 150 [MG/D (3X50) ]
     Route: 064
  2. REMICADE [Suspect]
     Dosage: 14.02., 12.04., 05.06., 31.07. AND 26.09.2012
     Route: 064
  3. ACICLOVIR [Concomitant]
     Route: 064
  4. VITAMIN B [Concomitant]
     Route: 064
  5. RHOPHYLAC [Concomitant]
     Route: 064
  6. CEFUROXIM /00454602/ [Concomitant]
     Route: 064
  7. FOLIO FORTE [Concomitant]
     Indication: PROPHYLAXIS OF NEURAL TUBE DEFECT
     Route: 064
  8. MINPROSTIN [Concomitant]
     Route: 064
  9. OXYTOCIN [Concomitant]
     Route: 064

REACTIONS (2)
  - Exposure during pregnancy [Unknown]
  - Congenital megaureter [Unknown]
